FAERS Safety Report 14680262 (Version 2)
Quarter: 2018Q1

REPORT INFORMATION
  Report Type: Spontaneous
  Country: US (occurrence: US)
  Receive Date: 20180326
  Receipt Date: 20180327
  Transmission Date: 20180509
  Serious: No
  Sender: FDA-Public Use
  Company Number: US-TEVA-2018-US-873334

PATIENT
  Sex: Female

DRUGS (1)
  1. ESTAZOLAM. [Suspect]
     Active Substance: ESTAZOLAM
     Indication: SLEEP DISORDER
     Route: 065

REACTIONS (2)
  - Drug effect delayed [Unknown]
  - Feeling abnormal [Unknown]
